FAERS Safety Report 24031053 (Version 2)
Quarter: 2024Q3

REPORT INFORMATION
  Report Type: Spontaneous
  Country: PL (occurrence: PL)
  Receive Date: 20240628
  Receipt Date: 20240716
  Transmission Date: 20241016
  Serious: Yes (Death, Other)
  Sender: GILEAD
  Company Number: PL-GILEAD-2024-0679007

PATIENT
  Sex: Male

DRUGS (1)
  1. TECARTUS [Suspect]
     Active Substance: BREXUCABTAGENE AUTOLEUCEL
     Indication: Product used for unknown indication
     Route: 065

REACTIONS (1)
  - Death [Fatal]
